FAERS Safety Report 5521132-0 (Version None)
Quarter: 2007Q4

REPORT INFORMATION
  Report Type: 
  Country: None (occurrence: None)
  Receive Date: 20071119
  Receipt Date: 20071114
  Transmission Date: 20080405
  Serious: Yes (Other)
  Sender: FDA-Public Use
  Company Number: US-JNJFOC-20071105237

PATIENT
  Age: 39 Year
  Sex: Male
  Weight: 83.92 kg

DRUGS (3)
  1. PEPCID COMPLETE [Suspect]
  2. PEPCID COMPLETE [Suspect]
     Indication: DYSPEPSIA
     Dosage: 1/2 CHEWABLE TABLET
  3. CENTRUM [Concomitant]
     Indication: ROUTINE HEALTH MAINTENANCE

REACTIONS (2)
  - DIZZINESS [None]
  - DYSPNOEA [None]
